FAERS Safety Report 4400860-4 (Version None)
Quarter: 2004Q3

REPORT INFORMATION
  Report Type: 
  Country: None (occurrence: None)
  Receive Date: 20040907
  Receipt Date: 20030709
  Transmission Date: 20050211
  Serious: No
  Sender: FDA-Public Use
  Company Number: US-BRISTOL-MYERS SQUIBB COMPANY-12321766

PATIENT
  Age: 80 Year
  Sex: Male
  Weight: 90 kg

DRUGS (9)
  1. COUMADIN [Suspect]
     Indication: THROMBOSIS
     Route: 048
  2. PRANDIN [Concomitant]
  3. DIGOXIN [Concomitant]
  4. LASIX [Concomitant]
  5. GEMFIBROZIL [Concomitant]
  6. FELODIPINE [Concomitant]
  7. AVANDIA [Concomitant]
  8. ATENOLOL [Concomitant]
  9. ZOCOR [Concomitant]

REACTIONS (1)
  - INTERNATIONAL NORMALISED RATIO DECREASED [None]
